FAERS Safety Report 7404467-6 (Version None)
Quarter: 2011Q2

REPORT INFORMATION
  Report Type: 
  Country: None (occurrence: None)
  Receive Date: 20110408
  Receipt Date: 20110329
  Transmission Date: 20111010
  Serious: Yes (Other)
  Sender: FDA-Public Use
  Company Number: CN-GENENTECH-316162

PATIENT

DRUGS (3)
  1. OXALIPLATIN [Suspect]
     Indication: NON-HODGKIN'S LYMPHOMA
     Dosage: 130 MG/M2, UNK
     Route: 042
  2. GEMCITABINE [Suspect]
     Indication: NON-HODGKIN'S LYMPHOMA
     Dosage: 1000 MG/M2, UNK
     Route: 042
  3. RITUXIMAB [Suspect]
     Indication: NON-HODGKIN'S LYMPHOMA
     Dosage: 375 MG/M2, UNK
     Route: 042

REACTIONS (5)
  - GASTROINTESTINAL DISORDER [None]
  - INFECTION [None]
  - RENAL IMPAIRMENT [None]
  - THROMBOCYTOPENIA [None]
  - NEUTROPENIA [None]
